FAERS Safety Report 4398455-4 (Version None)
Quarter: 2004Q3

REPORT INFORMATION
  Report Type: 
  Country: None (occurrence: None)
  Receive Date: 20040713
  Receipt Date: 20040706
  Transmission Date: 20050211
  Serious: Yes (Death, Hospitalization)
  Sender: FDA-Public Use
  Company Number: 2004222289PH

PATIENT
  Age: 33 Year
  Sex: Female

DRUGS (3)
  1. ZYVOX [Suspect]
     Indication: PNEUMONIA
     Dosage: SEE IMAGE
     Route: 042
     Dates: start: 20040601, end: 20040601
  2. ZYVOX [Suspect]
     Indication: PNEUMONIA
     Dosage: SEE IMAGE
     Route: 042
     Dates: start: 20040601, end: 20040601
  3. FORTUM (CEFTAZIDIME PENTAHYDRATE) [Concomitant]

REACTIONS (8)
  - CATHETER RELATED COMPLICATION [None]
  - CEREBRAL HAEMORRHAGE [None]
  - HAEMATOMA [None]
  - HAEMORRHAGE [None]
  - HEADACHE [None]
  - PLATELET COUNT DECREASED [None]
  - SOMNOLENCE [None]
  - THROMBOCYTOPENIA [None]
